FAERS Safety Report 9523426 (Version 1)
Quarter: 2013Q1

REPORT INFORMATION
  Report Type: Spontaneous
  Country: US (occurrence: None)
  Receive Date: 20130305
  Receipt Date: 20130305
  Transmission Date: 20140127
  Serious: Yes (Hospitalization)
  Sender: FDA-Public Use
  Company Number: 163-21880-12012598

PATIENT
  Age: 80 Year
  Sex: Male
  Weight: 87.09 kg

DRUGS (6)
  1. REVLIMID [Suspect]
     Indication: PLASMA CELL MYELOMA
     Dosage: 15 MG, 1 IN 1 D, PO
     Route: 048
     Dates: start: 20110109
  2. MULTIVITAMINS (MULTIVITAMINS) (TABLETS) [Concomitant]
  3. DEXAMETHASONE (DEXAMETHASONE) (UNKNOWN) [Concomitant]
  4. VELCADE [Concomitant]
  5. TRAZODONE (TRAZODONE) (UNKNOWN)? [Concomitant]
  6. COUMADIN (WARFARIN SODIUM) (UNKNOWN) [Concomitant]

REACTIONS (3)
  - Plasma cell myeloma [None]
  - Asthenia [None]
  - Rash [None]
